FAERS Safety Report 7994210-4 (Version None)
Quarter: 2011Q4

REPORT INFORMATION
  Report Type: 
  Country: None (occurrence: None)
  Receive Date: 20111220
  Receipt Date: 20110929
  Transmission Date: 20120403
  Serious: No
  Sender: FDA-Public Use
  Company Number: US-GLAXOSMITHKLINE-A0946453A

PATIENT
  Sex: Female

DRUGS (2)
  1. RYTHMOL [Suspect]
     Indication: PRODUCT USED FOR UNKNOWN INDICATION
     Dosage: 225MG TWICE PER DAY
     Route: 048
     Dates: start: 20110906
  2. ASPIRIN [Concomitant]

REACTIONS (3)
  - CHILLS [None]
  - NAUSEA [None]
  - LISTLESS [None]
